FAERS Safety Report 7508134-X (Version None)
Quarter: 2011Q2

REPORT INFORMATION
  Report Type: 
  Country: None (occurrence: None)
  Receive Date: 20110527
  Receipt Date: 20110513
  Transmission Date: 20111010
  Serious: Yes (Hospitalization, Other)
  Sender: FDA-Public Use
  Company Number: US-BAYER-201034302NA

PATIENT
  Age: 42 Day
  Sex: Female
  Weight: 58.957 kg

DRUGS (7)
  1. BIAXIN [Concomitant]
     Indication: HELICOBACTER GASTRITIS
  2. YASMIN [Suspect]
     Indication: CONTRACEPTION
     Dosage: UNK
     Dates: start: 20040101, end: 20070401
  3. NASONEX [Concomitant]
  4. SERTRALINE HYDROCHLORIDE [Concomitant]
     Dosage: 50 MG, QD
  5. AUGMENTIN [Concomitant]
     Indication: SINUSITIS
  6. ASTELIN [Concomitant]
  7. YAZ [Suspect]
     Indication: CONTRACEPTION
     Dosage: UNK
     Route: 048
     Dates: start: 20070401, end: 20100201

REACTIONS (6)
  - PAIN [None]
  - GALLBLADDER INJURY [None]
  - CHOLECYSTITIS [None]
  - CHOLELITHIASIS [None]
  - BILE DUCT OBSTRUCTION [None]
  - ABDOMINAL PAIN UPPER [None]
